FAERS Safety Report 9302941 (Version 1)
Quarter: 2013Q2

REPORT INFORMATION
  Report Type: Spontaneous
  Country: US (occurrence: None)
  Receive Date: 20130517
  Receipt Date: 20130517
  Transmission Date: 20140414
  Serious: Yes (Other)
  Sender: FDA-Public Use
  Company Number: 2013P1005858

PATIENT
  Age: 77 Year
  Sex: Male

DRUGS (2)
  1. LISINOPRIL [Suspect]
  2. 5-FLUOROURACIL [Suspect]
     Indication: ACTINIC KERATOSIS
     Route: 061

REACTIONS (7)
  - Anaphylactic reaction [None]
  - Drug interaction [None]
  - Presyncope [None]
  - Dysphonia [None]
  - Cross sensitivity reaction [None]
  - Incorrect dose administered [None]
  - Angioedema [None]
